FAERS Safety Report 6838346-X (Version None)
Quarter: 2010Q3

REPORT INFORMATION
  Report Type: 
  Country: None (occurrence: None)
  Receive Date: 20100713
  Receipt Date: 20070610
  Transmission Date: 20110219
  Serious: No
  Sender: FDA-Public Use
  Company Number: US-PFIZER INC-2007048359

PATIENT
  Sex: Female
  Weight: 77.272 kg

DRUGS (13)
  1. CHANTIX [Suspect]
     Indication: SMOKING CESSATION THERAPY
     Dosage: 0.5 MG DAILY EVERYDAY TDD:0.5 MG
     Dates: start: 20070606
  2. VALIUM [Interacting]
     Indication: MUSCLE SPASMS
     Dates: end: 20070601
  3. HYDROCODONE BITARTRATE [Concomitant]
     Indication: PAIN
  4. METFORMIN [Concomitant]
  5. DILTIAZEM [Concomitant]
  6. ACETYLSALICYLIC ACID [Concomitant]
  7. ZOCOR [Concomitant]
  8. ESTRADIOL [Concomitant]
  9. LYRICA [Concomitant]
  10. GLYBURIDE [Concomitant]
  11. LISINOPRIL [Concomitant]
  12. VITAMIN E [Concomitant]
  13. CITRACAL [Concomitant]

REACTIONS (7)
  - ABNORMAL BEHAVIOUR [None]
  - DISORIENTATION [None]
  - DRUG INTERACTION [None]
  - HYPERSOMNIA [None]
  - MEMORY IMPAIRMENT [None]
  - MUSCLE SPASMS [None]
  - SOMNOLENCE [None]
